FAERS Safety Report 7753145-2 (Version None)
Quarter: 2011Q3

REPORT INFORMATION
  Report Type: 
  Country: None (occurrence: None)
  Receive Date: 20110915
  Receipt Date: 20110907
  Transmission Date: 20111222
  Serious: Yes (Hospitalization)
  Sender: FDA-Public Use
  Company Number: JP-PFIZER INC-2011171032

PATIENT
  Age: 62 Year
  Sex: Male
  Weight: 53.8 kg

DRUGS (7)
  1. TICLOPIDINE HYDROCHLORIDE [Suspect]
     Indication: CORONARY ARTERY BYPASS
     Dosage: 100 MG, 2X/DAY
     Route: 048
     Dates: start: 20070101, end: 20110720
  2. LIPITOR [Suspect]
     Indication: HYPERLIPIDAEMIA
     Dosage: 5 MG, 1X/DAY
     Route: 048
     Dates: start: 20100401, end: 20110720
  3. ASPIRIN [Concomitant]
     Indication: CORONARY ARTERY BYPASS
     Dosage: UNK
     Route: 048
     Dates: start: 20040101
  4. LOSARTAN POTASSIUM [Concomitant]
     Indication: HYPERTENSION
     Dosage: UNK
     Route: 048
     Dates: start: 20100201
  5. AMLODIPINE [Concomitant]
     Indication: HYPERTENSION
     Dosage: UNK
     Dates: start: 20080801
  6. SAWADOL L [Concomitant]
     Indication: CORONARY ARTERY BYPASS
     Dosage: UNK
     Route: 048
     Dates: start: 20000101, end: 20110727
  7. MARZULENE S [Concomitant]
     Indication: GASTRITIS
     Dosage: UNK
     Dates: start: 20040101

REACTIONS (1)
  - INTERSTITIAL LUNG DISEASE [None]
